FAERS Safety Report 21836899 (Version 1)
Quarter: 2023Q1

REPORT INFORMATION
  Report Type: Spontaneous
  Country: US (occurrence: None)
  Receive Date: 20230106
  Receipt Date: 20230106
  Transmission Date: 20230417
  Serious: Yes (Hospitalization)
  Sender: FDA-Public Use
  Company Number: None

PATIENT
  Sex: Female

DRUGS (1)
  1. DIPHENHYDRAMINE [Suspect]
     Active Substance: DIPHENHYDRAMINE
     Indication: Secondary immunodeficiency
     Dosage: 25 GRAMS EVERY 4 WEEKS IV ?
     Route: 042
     Dates: start: 202205

REACTIONS (3)
  - Accidental overdose [None]
  - Product dispensing error [None]
  - Infusion related reaction [None]
